FAERS Safety Report 4622481-0 (Version None)
Quarter: 2005Q1

REPORT INFORMATION
  Report Type: 
  Country: None (occurrence: None)
  Receive Date: 20050325
  Receipt Date: 20050325
  Transmission Date: 20050727
  Serious: No
  Sender: FDA-Public Use
  Company Number: None

PATIENT

DRUGS (1)
  1. DEXEDRINE [Suspect]
     Indication: ATTENTION DEFICIT/HYPERACTIVITY DISORDER
     Dosage: 15 MG  TWO AM

REACTIONS (2)
  - DRUG EFFECT DECREASED [None]
  - PHARMACEUTICAL PRODUCT COMPLAINT [None]
